FAERS Safety Report 23880432 (Version 1)
Quarter: 2024Q2

REPORT INFORMATION
  Report Type: Spontaneous
  Country: US (occurrence: None)
  Receive Date: 20240521
  Receipt Date: 20240521
  Transmission Date: 20240716
  Serious: Yes (Hospitalization)
  Sender: FDA-Public Use
  Company Number: None

PATIENT
  Age: 37 Year
  Sex: Male
  Weight: 182 kg

DRUGS (3)
  1. CYCLOPHOSPHAMIDE [Suspect]
     Active Substance: CYCLOPHOSPHAMIDE
     Dates: end: 20240219
  2. PONATINIB [Suspect]
     Active Substance: PONATINIB
     Dates: end: 20240504
  3. PONATINIB [Suspect]
     Active Substance: PONATINIB

REACTIONS (3)
  - Pyrexia [None]
  - Chills [None]
  - Nausea [None]

NARRATIVE: CASE EVENT DATE: 20240409
